FAERS Safety Report 18046365 (Version 1)
Quarter: 2020Q3

REPORT INFORMATION
  Report Type: Spontaneous
  Country: FR (occurrence: FR)
  Receive Date: 20200721
  Receipt Date: 20200721
  Transmission Date: 20201103
  Serious: Yes (Hospitalization)
  Sender: FDA-Public Use
  Company Number: FR-SUN PHARMACEUTICAL INDUSTRIES LTD-2019RR-208572

PATIENT
  Age: 69 Year
  Sex: Female
  Weight: 76 kg

DRUGS (6)
  1. PARACETAMOL [Concomitant]
     Active Substance: ACETAMINOPHEN
     Indication: NEURALGIA
     Dosage: SI BESOIN
     Route: 048
  2. PREGABALIN. [Suspect]
     Active Substance: PREGABALIN
     Indication: NEURALGIA
     Dosage: 75 MILLIGRAM, DAILY
     Route: 048
     Dates: start: 20190123, end: 20190131
  3. IBUPROFENE [Concomitant]
     Active Substance: IBUPROFEN
     Indication: NEURALGIA
     Route: 048
  4. TRAMADOL. [Suspect]
     Active Substance: TRAMADOL
     Indication: NEURALGIA
     Dosage: NON PRECISEE
     Route: 048
     Dates: start: 20200131, end: 20200206
  5. PARACETAMOL [Concomitant]
     Active Substance: ACETAMINOPHEN
     Indication: NEURALGIA
     Route: 048
  6. IBUPROFENE [Concomitant]
     Active Substance: IBUPROFEN
     Dosage: A LA DEMANDE
     Route: 048

REACTIONS (1)
  - Pancreatitis acute [Recovered/Resolved]

NARRATIVE: CASE EVENT DATE: 20190131
